FAERS Safety Report 22221061 (Version 1)
Quarter: 2023Q2

REPORT INFORMATION
  Report Type: Spontaneous
  Country: GB (occurrence: GB)
  Receive Date: 20230418
  Receipt Date: 20230418
  Transmission Date: 20230722
  Serious: Yes (Other)
  Sender: FDA-Public Use
  Company Number: None

PATIENT
  Age: 70 Year
  Sex: Male
  Weight: 87 kg

DRUGS (26)
  1. METOPROLOL [Suspect]
     Active Substance: METOPROLOL
     Indication: Product used for unknown indication
     Route: 048
     Dates: start: 20230223
  2. PREDNISOLONE [Concomitant]
     Active Substance: PREDNISOLONE
     Dates: start: 20230209, end: 20230214
  3. ALBUTEROL [Concomitant]
     Active Substance: ALBUTEROL
     Dosage: 2 PUFF UP TO FOUR TIMES A DAY, AS NECESSARY
     Route: 055
     Dates: start: 20221230
  4. SIMVASTATIN [Concomitant]
     Active Substance: SIMVASTATIN
     Dosage: EVENING
     Dates: start: 20220410, end: 20230227
  5. AMOXICILLIN [Concomitant]
     Active Substance: AMOXICILLIN
     Route: 048
     Dates: start: 20230209, end: 20230216
  6. ASPIRIN [Concomitant]
     Active Substance: ASPIRIN
     Dates: start: 20230227
  7. ATORVASTATIN [Concomitant]
     Active Substance: ATORVASTATIN
     Indication: Blood cholesterol increased
     Dosage: EVENING
     Dates: start: 20230227
  8. CLOPIDOGREL [Concomitant]
     Active Substance: CLOPIDOGREL BISULFATE
     Dates: start: 20230227
  9. MICONAZOLE NITRATE [Concomitant]
     Active Substance: MICONAZOLE NITRATE
     Dates: start: 20230301, end: 20230309
  10. DAPAGLIFLOZIN [Concomitant]
     Active Substance: DAPAGLIFLOZIN
     Dates: start: 20230227
  11. DOXAZOSIN [Concomitant]
     Active Substance: DOXAZOSIN MESYLATE
     Indication: Blood pressure measurement
     Dosage: NIGHT
     Dates: start: 20220410, end: 20230227
  12. SACUBITRIL\VALSARTAN [Concomitant]
     Active Substance: SACUBITRIL\VALSARTAN
     Dates: start: 20230227
  13. EPLERENONE [Concomitant]
     Active Substance: EPLERENONE
     Dosage: MORNING
     Dates: start: 20230227
  14. FELODIPINE [Concomitant]
     Active Substance: FELODIPINE
     Dates: start: 20220410
  15. BECLOMETHASONE\FORMOTEROL [Concomitant]
     Active Substance: BECLOMETHASONE\FORMOTEROL
     Route: 055
     Dates: start: 20220410
  16. FUROSEMIDE [Concomitant]
     Active Substance: FUROSEMIDE
     Dosage: MORNING
     Dates: start: 20230227
  17. POTASSIUM BICARBONATE\SODIUM ALGINATE [Concomitant]
     Active Substance: POTASSIUM BICARBONATE\SODIUM ALGINATE
     Dosage: 5ML - 10ML 4 TIMES/DAY
     Dates: start: 20220410
  18. GLICLAZIDE [Concomitant]
     Active Substance: GLICLAZIDE
     Dosage: 1 EVERY MORNING, 2 EACH NIGHT
     Dates: start: 20220410
  19. HUMULIN L [Concomitant]
     Active Substance: INSULIN HUMAN
     Dosage: USE AS DIRECTED
     Dates: start: 20220410
  20. INDAPAMIDE [Concomitant]
     Active Substance: INDAPAMIDE
     Dosage: MORNING
     Dates: start: 20220410, end: 20230227
  21. IVABRADINE [Concomitant]
     Active Substance: IVABRADINE
     Dates: start: 20230227
  22. LANSOPRAZOLE [Concomitant]
     Active Substance: LANSOPRAZOLE
     Dates: start: 20230227
  23. LOSARTAN [Concomitant]
     Active Substance: LOSARTAN
     Dosage: (INSTEAD OF IRBESARTAN)
     Dates: start: 20220410, end: 20230227
  24. METFORMIN [Concomitant]
     Active Substance: METFORMIN HYDROCHLORIDE
     Dosage: 1 MORNING, 1 LUNCHTIME, 2 EVENING
     Dates: start: 20220410
  25. MONTELUKAST [Concomitant]
     Active Substance: MONTELUKAST SODIUM
     Dosage: NIGHT
     Dates: start: 20220410
  26. OMEPRAZOLE [Concomitant]
     Active Substance: OMEPRAZOLE
     Dates: start: 20220410, end: 20230227

REACTIONS (1)
  - Chest discomfort [Recovered/Resolved]
